FAERS Safety Report 13202163 (Version 3)
Quarter: 2017Q2

REPORT INFORMATION
  Report Type: Report from Study
  Country: US (occurrence: US)
  Receive Date: 20170208
  Receipt Date: 20170412
  Transmission Date: 20170830
  Serious: Yes (Hospitalization)
  Sender: FDA-Public Use
  Company Number: US-UCBSA-2017004557

PATIENT
  Age: 63 Year
  Sex: Male
  Weight: 69 kg

DRUGS (3)
  1. KEPPRA XR [Suspect]
     Active Substance: LEVETIRACETAM
     Indication: PARTIAL SEIZURES
     Dosage: 3000 MG DAILY, (STRENGTH: 750 MG)
     Route: 048
     Dates: start: 2006, end: 201701
  2. DILANTIN [Concomitant]
     Active Substance: PHENYTOIN
     Dosage: 30 MG, 2X/DAY (BID)
  3. DILANTIN [Concomitant]
     Active Substance: PHENYTOIN
     Indication: SEIZURE
     Dosage: 100 MG, 3X/DAY (TID)

REACTIONS (1)
  - Seizure [Recovered/Resolved]

NARRATIVE: CASE EVENT DATE: 20170119
